FAERS Safety Report 8471253-8 (Version None)
Quarter: 2012Q2

REPORT INFORMATION
  Report Type: 
  Country: None (occurrence: None)
  Receive Date: 20120323
  Receipt Date: 20111101
  Transmission Date: 20120825
  Serious: Yes (Other)
  Sender: FDA-Public Use
  Company Number: 163-21880-11110739

PATIENT
  Age: 80 Year
  Sex: Female
  Weight: 52.1637 kg

DRUGS (14)
  1. IRON (IRON) [Concomitant]
  2. PREDNISONE TAB [Concomitant]
  3. SPIRIVA [Concomitant]
  4. VITAMIN D (ASCORBIC ACID) [Concomitant]
  5. FLUCONAZOLE [Concomitant]
  6. LISINOPRIL [Concomitant]
  7. ASPIRIN (ACETYLSALICYLIC ACDI) [Concomitant]
  8. ACTONEL [Concomitant]
  9. PRILOSEC [Concomitant]
  10. LENALIDOMIDE [Suspect]
     Indication: MYELODYSPLASTIC SYNDROME
     Dosage: 10 MG, DAILY X 21 DAYS, PO
     Route: 048
     Dates: start: 20100819
  11. CALCIUM CARBONATE [Concomitant]
  12. TRAZODONE HCL [Concomitant]
  13. ADVAIR HFA [Concomitant]
  14. PROCRIT [Concomitant]

REACTIONS (1)
  - PLATELET COUNT DECREASED [None]
